FAERS Safety Report 6417348-1 (Version None)
Quarter: 2009Q4

REPORT INFORMATION
  Report Type: 
  Country: None (occurrence: None)
  Receive Date: 20091028
  Receipt Date: 20091016
  Transmission Date: 20100525
  Serious: Yes (Death)
  Sender: FDA-Public Use
  Company Number: KR-PFIZER INC-2009284620

PATIENT
  Age: 41 Year

DRUGS (6)
  1. VORICONAZOLE [Suspect]
     Indication: ASPERGILLOSIS
     Dosage: 400 MG, 2X/DAY
     Route: 048
     Dates: start: 20080924, end: 20080924
  2. VORICONAZOLE [Suspect]
     Dosage: 200 MG, 2X/DAY
     Route: 048
     Dates: start: 20080925, end: 20081219
  3. METHYLPREDNISOLONE [Concomitant]
     Indication: INFECTION
     Dosage: 62.5 MG, 1X/DAY
     Route: 042
     Dates: start: 20081001, end: 20081227
  4. CEFPIRAMIDE [Concomitant]
     Indication: INFECTION
     Dosage: 2 G, 2X/DAY
     Route: 042
     Dates: start: 20080914, end: 20081231
  5. HYDROCORTISONE [Concomitant]
     Indication: INFECTION
     Dosage: 50 MG, 1X/DAY
     Route: 042
     Dates: start: 20080820, end: 20090104
  6. METRONIDAZOLE [Concomitant]
     Indication: PNEUMONIA
     Dosage: 500 MG, 3X/DAY
     Route: 042
     Dates: start: 20080914, end: 20081227

REACTIONS (1)
  - DEATH [None]
